FAERS Safety Report 9404408 (Version 5)
Quarter: 2013Q4

REPORT INFORMATION
  Report Type: Report from Study
  Country: US (occurrence: US)
  Receive Date: 20130717
  Receipt Date: 20131107
  Transmission Date: 20140711
  Serious: Yes (Other)
  Sender: FDA-Public Use
  Company Number: US-BAYER-2013-086309

PATIENT
  Age: 32 Year
  Sex: Female
  Weight: 83.9 kg

DRUGS (1)
  1. MIRENA [Suspect]
     Indication: CONTRACEPTION
     Dosage: 20 MCG/24HR, CONT
     Route: 015
     Dates: start: 20130501, end: 20130715

REACTIONS (10)
  - Haemorrhage [Recovered/Resolved]
  - Back pain [Recovered/Resolved]
  - Endometriosis [None]
  - Procedural pain [Recovered/Resolved]
  - Abdominal pain lower [Recovered/Resolved]
  - Device dislocation [None]
  - Multiple use of single-use product [None]
  - Pain in extremity [Recovered/Resolved]
  - Complication of device insertion [None]
  - Dyspareunia [Recovered/Resolved]
